FAERS Safety Report 5467342-2 (Version None)
Quarter: 2007Q3

REPORT INFORMATION
  Report Type: 
  Country: None (occurrence: None)
  Receive Date: 20070925
  Receipt Date: 20070913
  Transmission Date: 20080115
  Serious: Yes (Life-Threatening)
  Sender: FDA-Public Use
  Company Number: ES-PFIZER INC-2007052815

PATIENT
  Sex: Male

DRUGS (2)
  1. CHAMPIX [Interacting]
     Indication: SMOKING CESSATION THERAPY
     Route: 048
     Dates: start: 20070327, end: 20070530
  2. FLUTICASONE PROPIONATE [Suspect]
     Indication: RHINITIS ALLERGIC
     Route: 045

REACTIONS (3)
  - DRUG INTERACTION [None]
  - RHINITIS ALLERGIC [None]
  - SUDDEN ONSET OF SLEEP [None]
